FAERS Safety Report 17427744 (Version 1)
Quarter: 2020Q1

REPORT INFORMATION
  Report Type: Spontaneous
  Country: JP (occurrence: JP)
  Receive Date: 20200218
  Receipt Date: 20200218
  Transmission Date: 20200409
  Serious: Yes (Life-Threatening, Hospitalization, Other)
  Sender: FDA-Public Use
  Company Number: JP-BRISTOL-MYERS SQUIBB COMPANY-BMS-2019-048844

PATIENT
  Age: 76 Year
  Sex: Male
  Weight: 52.1 kg

DRUGS (6)
  1. OPDIVO [Suspect]
     Active Substance: NIVOLUMAB
     Indication: GASTRIC CANCER
     Dosage: 140 MILLIGRAM
     Route: 041
     Dates: start: 20180803, end: 20181109
  2. TOUGHMAC E [Suspect]
     Active Substance: AMYLASE\LIPASE\PROTEASE
     Indication: DYSPEPSIA
     Dosage: 3 DOSAGE FORM, Q8H
     Route: 048
     Dates: start: 20150903
  3. MECOBALAMIN [Concomitant]
     Active Substance: METHYLCOBALAMIN
     Indication: NERVOUS SYSTEM DISORDER
     Dosage: 3000 MICROGRAM, Q8H
     Route: 048
     Dates: start: 20170519
  4. GOSHAJINKIGAN [Concomitant]
     Active Substance: HERBALS
     Indication: NERVOUS SYSTEM DISORDER
     Dosage: 150 MILLIGRAM, Q8H
     Route: 048
     Dates: start: 20170519
  5. MIYA-BM [Concomitant]
     Active Substance: CLOSTRIDIUM BUTYRICUM SPORES STRAIN M-55
     Indication: DIARRHOEA
     Dosage: 6 DOSAGE FORM, Q8H
     Route: 048
     Dates: start: 20170106
  6. URSO [Concomitant]
     Active Substance: URSODIOL
     Indication: CHOLESTASIS
     Dosage: 300 MILLIGRAM, Q8H
     Route: 048
     Dates: start: 20180413

REACTIONS (6)
  - Vascular device infection [Unknown]
  - Hypopituitarism [Recovered/Resolved]
  - Secondary adrenocortical insufficiency [Recovering/Resolving]
  - Secondary hypothyroidism [Recovering/Resolving]
  - Adrenal insufficiency [Recovered/Resolved]
  - Shock symptom [Unknown]

NARRATIVE: CASE EVENT DATE: 20181130
